FAERS Safety Report 14553249 (Version 3)
Quarter: 2018Q3

REPORT INFORMATION
  Report Type: Spontaneous
  Country: US (occurrence: US)
  Receive Date: 20180220
  Receipt Date: 20180917
  Transmission Date: 20181010
  Serious: Yes (Hospitalization)
  Sender: FDA-Public Use
  Company Number: US-DSJP-DSU-2017-150574

PATIENT

DRUGS (2)
  1. BENICAR [Suspect]
     Active Substance: OLMESARTAN MEDOXOMIL
     Indication: PRODUCT USED FOR UNKNOWN INDICATION
     Dosage: 20 MG, UNK
     Dates: start: 20111001, end: 20170308
  2. BENICAR [Suspect]
     Active Substance: OLMESARTAN MEDOXOMIL
     Dosage: 40 MG, UNK
     Dates: start: 20111001, end: 20170308

REACTIONS (4)
  - Gastric polyps [Unknown]
  - Sprue-like enteropathy [Recovering/Resolving]
  - Colitis ischaemic [Unknown]
  - Diverticulum [Unknown]

NARRATIVE: CASE EVENT DATE: 20130221
